FAERS Safety Report 4309601-2 (Version None)
Quarter: 2004Q1

REPORT INFORMATION
  Report Type: 
  Country: None (occurrence: None)
  Receive Date: 20040301
  Receipt Date: 20040223
  Transmission Date: 20041129
  Serious: Yes (Hospitalization)
  Sender: FDA-Public Use
  Company Number: 200402439

PATIENT
  Age: 40 Year
  Sex: Male

DRUGS (1)
  1. TYLENOL ANALGESIC [Suspect]
     Dosage: PO
     Route: 048
     Dates: start: 20040217

REACTIONS (3)
  - DIFFICULTY IN WALKING [None]
  - LETHARGY [None]
  - OVERDOSE [None]
